FAERS Safety Report 4506349-6 (Version None)
Quarter: 2004Q4

REPORT INFORMATION
  Report Type: 
  Country: None (occurrence: None)
  Receive Date: 20041025
  Receipt Date: 20031216
  Transmission Date: 20050328
  Serious: Yes (Other)
  Sender: FDA-Public Use
  Company Number: US-JNJFOC-20031101055

PATIENT
  Age: 52 Year
  Sex: Female
  Weight: 92.9874 kg

DRUGS (7)
  1. REMICADE [Suspect]
     Indication: RHEUMATOID ARTHRITIS
     Dosage: 3 VIALS
     Dates: start: 20030701
  2. ARAVA [Concomitant]
  3. ACTIVELLA (OESTRANORM) [Concomitant]
  4. PROZAC [Concomitant]
  5. PREVACID [Concomitant]
  6. ALBUTEROL [Concomitant]
  7. DIOVAN HCT (CO-DIOVAN) [Concomitant]

REACTIONS (2)
  - PHLEBITIS [None]
  - RHEUMATOID ARTHRITIS [None]
